FAERS Safety Report 22786964 (Version 2)
Quarter: 2023Q4

REPORT INFORMATION
  Report Type: Spontaneous
  Country: PT (occurrence: PT)
  Receive Date: 20230804
  Receipt Date: 20231026
  Transmission Date: 20240110
  Serious: Yes (Disabling)
  Sender: FDA-Public Use
  Company Number: None

PATIENT
  Age: 73 Year
  Sex: Female

DRUGS (8)
  1. FOSAVANCE [Suspect]
     Active Substance: ALENDRONATE SODIUM\CHOLECALCIFEROL
     Dosage: ONLY TOOK ONE TABLET. AFTER THE ADR SUSPENDED THE TREATMENT (STRENGTH: 70 MG + 5600 U.I)
     Route: 048
     Dates: start: 20230707
  2. BETAHISTINE [Concomitant]
     Active Substance: BETAHISTINE
     Dosage: UNK
  3. LERCANIDIPINA [LERCANIDIPINE] [Concomitant]
     Dosage: UNK
  4. ROZETIN [Concomitant]
     Dosage: UNK
  5. FERRUM HAUSMANN [FERRIC HYDROXIDE POLYMALTOSE COMPLEX] [Concomitant]
     Dosage: UNK
  6. METFORMIN [Concomitant]
     Active Substance: METFORMIN HYDROCHLORIDE
     Dosage: UNK
  7. ASPIRIN [Concomitant]
     Active Substance: ASPIRIN
     Dosage: UNK
  8. RIVOTRIL [Concomitant]
     Active Substance: CLONAZEPAM
     Dosage: UNK

REACTIONS (5)
  - Arthralgia [Recovering/Resolving]
  - Headache [Recovered/Resolved]
  - Chills [Recovered/Resolved]
  - Joint swelling [Recovering/Resolving]
  - Muscular weakness [Recovering/Resolving]

NARRATIVE: CASE EVENT DATE: 20230708
